FAERS Safety Report 7477512-X (Version None)
Quarter: 2011Q2

REPORT INFORMATION
  Report Type: 
  Country: None (occurrence: None)
  Receive Date: 20110510
  Receipt Date: 20110510
  Transmission Date: 20111010
  Serious: Yes (Other)
  Sender: FDA-Public Use
  Company Number: None

PATIENT
  Age: 36 Year
  Sex: Male
  Weight: 145.151 kg

DRUGS (1)
  1. ZOLOFT [Suspect]
     Indication: DEPRESSION
     Dosage: 50 MG 1X DAY PO
     Route: 048
     Dates: start: 20110401, end: 20110415

REACTIONS (4)
  - HALLUCINATION, TACTILE [None]
  - INSOMNIA [None]
  - SCHIZOPHRENIA, PARANOID TYPE [None]
  - HALLUCINATIONS, MIXED [None]
